FAERS Safety Report 19229912 (Version 1)
Quarter: 2021Q2

REPORT INFORMATION
  Report Type: Spontaneous
  Country: US (occurrence: US)
  Receive Date: 20210506
  Receipt Date: 20210506
  Transmission Date: 20210717
  Serious: Yes (Other)
  Sender: FDA-Public Use
  Company Number: US-TECHDOW-2021TECHDOW000564

PATIENT
  Age: 28 Year
  Sex: Female

DRUGS (4)
  1. HEPARIN SODIUM INJECTION, USP (PRESERVATIVE FREE) [Suspect]
     Active Substance: HEPARIN SODIUM
     Indication: ANTICOAGULANT THERAPY
     Route: 041
  2. ACETAZOLAMIDE. [Concomitant]
     Active Substance: ACETAZOLAMIDE
     Dosage: 250 MG ONCE DAILY
     Route: 041
  3. ACETAZOLAMIDE. [Concomitant]
     Active Substance: ACETAZOLAMIDE
     Dosage: 750 MG ONCE DAILY
  4. SOLU?MEDROL [Concomitant]
     Active Substance: METHYLPREDNISOLONE SODIUM SUCCINATE
     Dosage: 1 MG/KG

REACTIONS (5)
  - Stevens-Johnson syndrome [Unknown]
  - Multiple organ dysfunction syndrome [Unknown]
  - Intraventricular haemorrhage [Unknown]
  - Sepsis [Unknown]
  - Pulmonary embolism [Unknown]
